FAERS Safety Report 21470641 (Version 1)
Quarter: 2022Q4

REPORT INFORMATION
  Report Type: Spontaneous
  Country: US (occurrence: None)
  Receive Date: 20221017
  Receipt Date: 20221017
  Transmission Date: 20230112
  Serious: No
  Sender: FDA-Public Use
  Company Number: None

PATIENT
  Sex: Female

DRUGS (1)
  1. TALTZ [Suspect]
     Active Substance: IXEKIZUMAB
     Indication: Guttate psoriasis
     Dosage: OTHER QUANTITY : 80MG/ML ;?FREQUENCY : EVERY OTHER WEEK;?
     Route: 058
     Dates: start: 20220915

REACTIONS (2)
  - Product prescribing error [None]
  - Inappropriate schedule of product administration [None]
